FAERS Safety Report 4660968-5 (Version None)
Quarter: 2005Q2

REPORT INFORMATION
  Report Type: 
  Country: None (occurrence: None)
  Receive Date: 20050511
  Receipt Date: 20050429
  Transmission Date: 20051028
  Serious: Yes (Hospitalization, Other)
  Sender: FDA-Public Use
  Company Number: KII-2005-0016439

PATIENT
  Age: 43 Year
  Sex: Female

DRUGS (3)
  1. OXYCONTIN [Suspect]
     Dosage: SEE IMAGE
     Route: 048
  2. ANTIHISTAMINES FOR  SYSTEMIC USE [Suspect]
     Dosage: SEE IMAGE
     Route: 048
  3. HEROIN (DIAMORPHINE) [Suspect]

REACTIONS (4)
  - OVERDOSE [None]
  - POLYSUBSTANCE ABUSE [None]
  - SUICIDE ATTEMPT [None]
  - TACHYCARDIA [None]
